FAERS Safety Report 7346007-6 (Version None)
Quarter: 2011Q1

REPORT INFORMATION
  Report Type: 
  Country: None (occurrence: None)
  Receive Date: 20110311
  Receipt Date: 20110224
  Transmission Date: 20110831
  Serious: Yes (Hospitalization)
  Sender: FDA-Public Use
  Company Number: IT-RANBAXY-2011RR-42766

PATIENT
  Age: 11 Month
  Sex: Male

DRUGS (2)
  1. PARACETAMOL [Suspect]
     Indication: PYREXIA
     Dosage: 12 MG/KG, Q4H
     Route: 048
  2. PARACETAMOL [Suspect]
     Dosage: 12.5 MG/KG, Q3H
     Route: 054

REACTIONS (2)
  - LIVER INJURY [None]
  - HEPATITIS FULMINANT [None]
